FAERS Safety Report 4418525-1 (Version None)
Quarter: 2004Q3

REPORT INFORMATION
  Report Type: 
  Country: None (occurrence: None)
  Receive Date: 20040809
  Receipt Date: 20040520
  Transmission Date: 20050211
  Serious: No
  Sender: FDA-Public Use
  Company Number: US-GLAXOSMITHKLINE-A0511627A

PATIENT
  Age: 62 Year
  Sex: Male

DRUGS (4)
  1. PAXIL CR [Suspect]
     Indication: DEPRESSION
     Dosage: 25MG PER DAY
     Route: 048
     Dates: start: 20030101
  2. AMBIEN [Concomitant]
  3. PREVACID [Concomitant]
  4. XANAX [Concomitant]

REACTIONS (4)
  - ANXIETY [None]
  - FATIGUE [None]
  - ORAL DISCOMFORT [None]
  - SEXUAL DYSFUNCTION [None]
